FAERS Safety Report 7291018-2 (Version None)
Quarter: 2011Q1

REPORT INFORMATION
  Report Type: 
  Country: None (occurrence: None)
  Receive Date: 20110214
  Receipt Date: 20110209
  Transmission Date: 20110831
  Serious: Yes (Life-Threatening, Other)
  Sender: FDA-Public Use
  Company Number: PHHY2011GB10269

PATIENT
  Age: 74 Year
  Sex: Male
  Weight: 85 kg

DRUGS (11)
  1. SERTRALINE HYDROCHLORIDE [Suspect]
     Indication: DEPRESSION
     Dosage: UNK
     Route: 048
     Dates: start: 20101201, end: 20110125
  2. ASPIRIN [Concomitant]
     Dosage: UNK
  3. BISOPROLOL FUMARATE [Concomitant]
  4. ISOSORBIDE MONONITRATE [Concomitant]
  5. ATORVASTATIN [Concomitant]
  6. FELODIPINE [Concomitant]
  7. NICORANDIL [Concomitant]
  8. MEROPENEM [Suspect]
     Dosage: 500 MG, UNK
     Route: 042
     Dates: start: 20110125, end: 20110125
  9. METRONIDAZOLE [Suspect]
     Dosage: 500 MG, UNK
     Route: 042
     Dates: start: 20110125, end: 20110125
  10. CANDESARTAN CILEXETIL [Concomitant]
  11. CLARITHROMYCIN [Concomitant]

REACTIONS (11)
  - HEPATIC FAILURE [None]
  - HEPATOMEGALY [None]
  - LIVER FUNCTION TEST ABNORMAL [None]
  - JAUNDICE [None]
  - PAIN [None]
  - CARDIAC FAILURE [None]
  - RESPIRATORY FAILURE [None]
  - MULTI-ORGAN FAILURE [None]
  - RENAL FAILURE [None]
  - INTERNATIONAL NORMALISED RATIO INCREASED [None]
  - ACUTE HEPATIC FAILURE [None]
